FAERS Safety Report 18186767 (Version 1)
Quarter: 2020Q3

REPORT INFORMATION
  Report Type: Spontaneous
  Country: US (occurrence: US)
  Receive Date: 20200824
  Receipt Date: 20200824
  Transmission Date: 20201103
  Serious: No
  Sender: FDA-Public Use
  Company Number: None

PATIENT
  Age: 40 Year
  Sex: Female

DRUGS (2)
  1. GAMMAGARD LIQUID [Suspect]
     Active Substance: HUMAN IMMUNOGLOBULIN G
     Dosage: DAILY FOR 2 DAYS EVERY 4 WEEKS
     Dates: start: 20191106
  2. GAMMAGARD LIQUID [Suspect]
     Active Substance: HUMAN IMMUNOGLOBULIN G
     Dosage: DAILY FOR 2 DAYS EVERY 4 WEEKS
     Route: 042
     Dates: start: 20191106

REACTIONS (2)
  - Presyncope [None]
  - Infusion related reaction [None]

NARRATIVE: CASE EVENT DATE: 20200813
